FAERS Safety Report 4730843-6 (Version None)
Quarter: 2005Q3

REPORT INFORMATION
  Report Type: 
  Country: None (occurrence: None)
  Receive Date: 20050719
  Receipt Date: 20040628
  Transmission Date: 20060218
  Serious: Yes (Other)
  Sender: FDA-Public Use
  Company Number: 190446

PATIENT
  Age: 40 Year
  Sex: Female

DRUGS (8)
  1. AVONEX [Suspect]
     Indication: MULTIPLE SCLEROSIS
     Dosage: 30 UG;QW;IM
     Route: 030
     Dates: start: 20031017, end: 20031228
  2. TAPAZOLE [Concomitant]
  3. OXYCODONE [Concomitant]
  4. CLONAZEPAM [Concomitant]
  5. ASPIRIN [Concomitant]
  6. MOTRIN [Concomitant]
  7. METOPROLOL [Concomitant]
  8. ALEVE [Concomitant]

REACTIONS (8)
  - ANGIONEUROTIC OEDEMA [None]
  - ANXIETY [None]
  - DEPRESSION [None]
  - JOINT SWELLING [None]
  - OEDEMA PERIPHERAL [None]
  - PRURITUS [None]
  - RASH ERYTHEMATOUS [None]
  - URTICARIA [None]
